FAERS Safety Report 22233851 (Version 1)
Quarter: 2023Q2

REPORT INFORMATION
  Report Type: Spontaneous
  Country: US (occurrence: US)
  Receive Date: 20230420
  Receipt Date: 20230420
  Transmission Date: 20230721
  Serious: Yes (Other)
  Sender: FDA-Public Use
  Company Number: US-JNJFOC-20230434167

PATIENT
  Age: 67 Year
  Sex: Male

DRUGS (6)
  1. ERDAFITINIB [Suspect]
     Active Substance: ERDAFITINIB
     Indication: Pancreatic carcinoma
     Route: 065
  2. ERDAFITINIB [Suspect]
     Active Substance: ERDAFITINIB
     Indication: Prostate cancer
  3. TRAMETINIB [Suspect]
     Active Substance: TRAMETINIB
     Indication: Pancreatic carcinoma
     Route: 065
  4. TRAMETINIB [Suspect]
     Active Substance: TRAMETINIB
     Indication: Prostate cancer
  5. HYDROXYCHLOROQUINE [Suspect]
     Active Substance: HYDROXYCHLOROQUINE
     Indication: Pancreatic carcinoma
     Route: 065
  6. HYDROXYCHLOROQUINE [Suspect]
     Active Substance: HYDROXYCHLOROQUINE
     Indication: Prostate cancer

REACTIONS (3)
  - Serous retinopathy [Unknown]
  - Haematemesis [Unknown]
  - Off label use [Unknown]
